FAERS Safety Report 5836281-7 (Version None)
Quarter: 2008Q3

REPORT INFORMATION
  Report Type: 
  Country: None (occurrence: None)
  Receive Date: 20080807
  Receipt Date: 20080730
  Transmission Date: 20090109
  Serious: Yes (Death, Hospitalization)
  Sender: FDA-Public Use
  Company Number: BR-BAYER-BR-2007-002724

PATIENT
  Age: 38 Year
  Sex: Female

DRUGS (1)
  1. BETAFERON [Suspect]
     Indication: MULTIPLE SCLEROSIS
     Route: 058
     Dates: start: 20030101, end: 20070401

REACTIONS (9)
  - ABDOMINAL DISTENSION [None]
  - ARRHYTHMIA [None]
  - BACK PAIN [None]
  - CARDIAC ARREST [None]
  - CARDIAC DISORDER [None]
  - DYSPNOEA [None]
  - EPISTAXIS [None]
  - HYPERTENSION [None]
  - MALAISE [None]
